FAERS Safety Report 5701287-5 (Version None)
Quarter: 2008Q2

REPORT INFORMATION
  Report Type: 
  Country: None (occurrence: None)
  Receive Date: 20080407
  Receipt Date: 20080328
  Transmission Date: 20081010
  Serious: Yes (Other)
  Sender: FDA-Public Use
  Company Number: GXKR2007DE05736

PATIENT
  Sex: Female
  Weight: 63 kg

DRUGS (1)
  1. METRONIDAZOL HEXAL (NGX)(METONIDAZOLE) TABLET, 400MG [Suspect]
     Indication: VAGINITIS BACTERIAL
     Dosage: 400 MG, BID, ORAL
     Route: 048
     Dates: start: 20070611, end: 20070617

REACTIONS (3)
  - BREECH PRESENTATION [None]
  - CAESAREAN SECTION [None]
  - DRUG EXPOSURE DURING PREGNANCY [None]
